FAERS Safety Report 6416503-4 (Version None)
Quarter: 2009Q4

REPORT INFORMATION
  Report Type: 
  Country: None (occurrence: None)
  Receive Date: 20091027
  Receipt Date: 20091015
  Transmission Date: 20100525
  Serious: Yes (Hospitalization)
  Sender: FDA-Public Use
  Company Number: PHHO2009TR12358

PATIENT
  Sex: Male
  Weight: 61.4 kg

DRUGS (1)
  1. ICL670A ICL+DISTAB [Suspect]
     Indication: HAEMOSIDEROSIS
     Dosage: 1250 MG/KG DAILY
     Route: 048
     Dates: start: 20090702

REACTIONS (5)
  - ABDOMINAL PAIN UPPER [None]
  - CONCOMITANT DISEASE PROGRESSION [None]
  - FATIGUE [None]
  - PYREXIA [None]
  - VOMITING [None]
